FAERS Safety Report 17396441 (Version 1)
Quarter: 2020Q1

REPORT INFORMATION
  Report Type: Spontaneous
  Country: US (occurrence: US)
  Receive Date: 20200210
  Receipt Date: 20200210
  Transmission Date: 20200409
  Serious: No
  Sender: FDA-Public Use
  Company Number: US-SA-2020SA027849

PATIENT
  Sex: Female

DRUGS (11)
  1. LABETALOL HCL [Concomitant]
     Active Substance: LABETALOL HYDROCHLORIDE
  2. OXCARBAZEPIN [Concomitant]
     Active Substance: OXCARBAZEPINE
  3. AMITRIPTYLINE [Concomitant]
     Active Substance: AMITRIPTYLINE
  4. AMLODIPINE [Concomitant]
     Active Substance: AMLODIPINE BESYLATE
  5. LISINOPRIL. [Concomitant]
     Active Substance: LISINOPRIL
  6. GABAPENTIN. [Concomitant]
     Active Substance: GABAPENTIN
  7. DUPIXENT [Suspect]
     Active Substance: DUPILUMAB
     Indication: PRODUCT USED FOR UNKNOWN INDICATION
     Dosage: 300 MG, QOW
     Route: 058
  8. LORAZEPAM. [Concomitant]
     Active Substance: LORAZEPAM
  9. TOPIRAMATE. [Concomitant]
     Active Substance: TOPIRAMATE
  10. VITAMIN D [VITAMIN D NOS] [Concomitant]
     Active Substance: VITAMIN D NOS
  11. RANITIDINE HCL [Concomitant]
     Active Substance: RANITIDINE HYDROCHLORIDE

REACTIONS (1)
  - Product dose omission [Unknown]
